FAERS Safety Report 5407628-0 (Version None)
Quarter: 2007Q3

REPORT INFORMATION
  Report Type: 
  Country: None (occurrence: None)
  Receive Date: 20070807
  Receipt Date: 20070726
  Transmission Date: 20080115
  Serious: Yes (Death, Other)
  Sender: FDA-Public Use
  Company Number: GB-PFIZER INC-2007047402

PATIENT
  Sex: Male

DRUGS (2)
  1. LIPITOR [Suspect]
     Indication: HYPERLIPIDAEMIA
     Route: 048
  2. FENOFIBRATE (MICRONIZED) [Suspect]

REACTIONS (3)
  - CHOLELITHIASIS [None]
  - HYPERTENSION [None]
  - PANCREATITIS ACUTE [None]
